FAERS Safety Report 7345169-4 (Version None)
Quarter: 2011Q1

REPORT INFORMATION
  Report Type: 
  Country: None (occurrence: None)
  Receive Date: 20110310
  Receipt Date: 20110302
  Transmission Date: 20110831
  Serious: Yes (Disabling)
  Sender: FDA-Public Use
  Company Number: GB-BAXTER-2011BH005665

PATIENT
  Age: 46 Year
  Sex: Female
  Weight: 73 kg

DRUGS (30)
  1. SODIUM CHLORIDE 0.9% IN PLASTIC CONTAINER [Suspect]
     Route: 042
     Dates: start: 20101216, end: 20101216
  2. SODIUM CHLORIDE 0.9% IN PLASTIC CONTAINER [Suspect]
     Route: 042
  3. SODIUM CHLORIDE 0.9% IN PLASTIC CONTAINER [Suspect]
     Route: 042
     Dates: start: 20101229, end: 20101229
  4. SODIUM CHLORIDE 0.9% IN PLASTIC CONTAINER [Suspect]
     Route: 042
     Dates: start: 20110126, end: 20110126
  5. SODIUM CHLORIDE 0.9% IN PLASTIC CONTAINER [Suspect]
     Route: 042
     Dates: start: 20110202, end: 20110202
  6. PACLITAXEL [Suspect]
     Route: 042
     Dates: start: 20110202, end: 20110202
  7. PACLITAXEL [Suspect]
     Route: 042
     Dates: start: 20101222, end: 20101222
  8. PACLITAXEL [Suspect]
     Route: 042
     Dates: start: 20101208, end: 20101208
  9. SODIUM CHLORIDE 0.9% IN PLASTIC CONTAINER [Suspect]
     Route: 042
     Dates: start: 20101208, end: 20101208
  10. SODIUM CHLORIDE 0.9% IN PLASTIC CONTAINER [Suspect]
     Route: 042
     Dates: start: 20110111, end: 20110111
  11. SODIUM CHLORIDE 0.9% IN PLASTIC CONTAINER [Suspect]
     Indication: PRODUCT USED FOR UNKNOWN INDICATION
     Route: 042
     Dates: start: 20101124
  12. PACLITAXEL [Suspect]
     Route: 042
     Dates: start: 20101216, end: 20101216
  13. SODIUM CHLORIDE 0.9% IN PLASTIC CONTAINER [Suspect]
     Indication: BREAST CANCER
     Route: 042
     Dates: start: 20101124, end: 20101124
  14. PACLITAXEL [Suspect]
     Indication: BREAST CANCER
     Route: 042
     Dates: start: 20101124, end: 20101124
  15. DEXAMETHASONE [Suspect]
     Indication: PRODUCT USED FOR UNKNOWN INDICATION
     Route: 042
     Dates: start: 20101124
  16. SODIUM CHLORIDE 0.9% IN PLASTIC CONTAINER [Suspect]
     Route: 042
     Dates: start: 20101222, end: 20101222
  17. PACLITAXEL [Suspect]
     Route: 042
     Dates: start: 20110216, end: 20110216
  18. PACLITAXEL [Suspect]
     Route: 042
     Dates: start: 20101201, end: 20101201
  19. PACLITAXEL [Suspect]
     Route: 042
     Dates: start: 20110119, end: 20110119
  20. ALOXI [Suspect]
     Indication: PRODUCT USED FOR UNKNOWN INDICATION
     Route: 042
     Dates: start: 20101124
  21. RANITIDINE [Suspect]
     Indication: PRODUCT USED FOR UNKNOWN INDICATION
     Route: 042
     Dates: start: 20101124
  22. SODIUM CHLORIDE 0.9% IN PLASTIC CONTAINER [Suspect]
     Route: 042
     Dates: start: 20101201, end: 20101201
  23. SODIUM CHLORIDE 0.9% IN PLASTIC CONTAINER [Suspect]
     Route: 042
     Dates: start: 20110209, end: 20110209
  24. SODIUM CHLORIDE 0.9% IN PLASTIC CONTAINER [Suspect]
     Route: 042
     Dates: start: 20110119, end: 20110119
  25. PACLITAXEL [Suspect]
     Route: 042
     Dates: start: 20110111, end: 20110111
  26. PACLITAXEL [Suspect]
     Route: 042
     Dates: start: 20110126, end: 20110126
  27. SODIUM CHLORIDE 0.9% IN PLASTIC CONTAINER [Suspect]
     Route: 042
     Dates: start: 20110216, end: 20110216
  28. PACLITAXEL [Suspect]
     Route: 042
     Dates: start: 20110209, end: 20110209
  29. PACLITAXEL [Suspect]
     Route: 042
     Dates: start: 20101229, end: 20101229
  30. CHLORPHENAMINE [Suspect]
     Indication: PRODUCT USED FOR UNKNOWN INDICATION
     Route: 042
     Dates: start: 20101124

REACTIONS (1)
  - NEUROPATHY PERIPHERAL [None]
